FAERS Safety Report 5637225-3 (Version None)
Quarter: 2008Q1

REPORT INFORMATION
  Report Type: 
  Country: None (occurrence: None)
  Receive Date: 20080220
  Receipt Date: 20080220
  Transmission Date: 20080703
  Serious: Yes (Hospitalization)
  Sender: FDA-Public Use
  Company Number: None

PATIENT
  Age: 37 Year
  Sex: Male

DRUGS (2)
  1. THALIDOMIDE [Suspect]
     Dosage: 200MG EVERY DAY PO
     Route: 048
     Dates: start: 20070315, end: 20070524
  2. DEXAMETHASONE TAB [Suspect]
     Dosage: 40MG EVERY DAY PO
     Route: 048
     Dates: start: 20070501, end: 20070524

REACTIONS (1)
  - DIZZINESS [None]
